FAERS Safety Report 9859627 (Version 2)
Quarter: 2014Q2

REPORT INFORMATION
  Report Type: Spontaneous
  Country: US (occurrence: US)
  Receive Date: 20140131
  Receipt Date: 20140530
  Transmission Date: 20141212
  Serious: No
  Sender: FDA-Public Use
  Company Number: US-009507513-1401USA011401

PATIENT
  Sex: Female
  Weight: 79.37 kg

DRUGS (2)
  1. MIRALAX [Suspect]
     Indication: CONSTIPATION
     Dosage: UNK, QOD
     Route: 048
  2. MIRALAX [Suspect]
     Dosage: UNK, QOD
     Route: 048
     Dates: start: 20140107

REACTIONS (1)
  - Inappropriate schedule of drug administration [Unknown]
